FAERS Safety Report 11603033 (Version 7)
Quarter: 2017Q3

REPORT INFORMATION
  Report Type: Spontaneous
  Country: US (occurrence: US)
  Receive Date: 20151006
  Receipt Date: 20170818
  Transmission Date: 20171127
  Serious: Yes (Other)
  Sender: FDA-Public Use
  Company Number: US-AMGEN-USASP2015096837

PATIENT
  Age: 71 Year
  Sex: Female
  Weight: 45.35 kg

DRUGS (6)
  1. SINGULAIR [Concomitant]
     Active Substance: MONTELUKAST SODIUM
     Indication: HYPERSENSITIVITY
     Dosage: 10 UNK, QD
     Route: 048
  2. LAMOTRIGINE. [Concomitant]
     Active Substance: LAMOTRIGINE
     Indication: PAIN
     Dosage: 100 UNK, BID
     Route: 048
  3. DONEPEZIL. [Concomitant]
     Active Substance: DONEPEZIL
     Indication: AMNESIA
     Dosage: 10 UNK, QD
     Route: 048
  4. PROLIA [Suspect]
     Active Substance: DENOSUMAB
     Indication: OSTEOPOROSIS POSTMENOPAUSAL
     Dosage: 60 MG, UNK
     Route: 058
     Dates: start: 2013
  5. PREMPRO [Concomitant]
     Active Substance: ESTROGENS, CONJUGATED\MEDROXYPROGESTERONE ACETATE
     Indication: MENOPAUSE
     Dosage: UNK UNK, QD
     Route: 048
  6. BACLOFEN. [Concomitant]
     Active Substance: BACLOFEN
     Indication: MUSCLE SPASMS
     Dosage: 10 UNK, QD
     Route: 048

REACTIONS (23)
  - Macular degeneration [Unknown]
  - Groin pain [Unknown]
  - Urinary tract infection [Unknown]
  - Insomnia [Unknown]
  - Speech disorder [Not Recovered/Not Resolved]
  - Dysuria [Unknown]
  - Decreased appetite [Not Recovered/Not Resolved]
  - Back pain [Not Recovered/Not Resolved]
  - Bladder disorder [Not Recovered/Not Resolved]
  - Oral candidiasis [Unknown]
  - Pharyngeal oedema [Unknown]
  - Injection site inflammation [Unknown]
  - Arthritis [Not Recovered/Not Resolved]
  - Peripheral swelling [Unknown]
  - Systemic lupus erythematosus [Unknown]
  - Adverse drug reaction [Not Recovered/Not Resolved]
  - Dental restoration failure [Not Recovered/Not Resolved]
  - Vision blurred [Not Recovered/Not Resolved]
  - Joint swelling [Not Recovered/Not Resolved]
  - Nausea [Unknown]
  - Arthralgia [Not Recovered/Not Resolved]
  - Intervertebral disc degeneration [Unknown]
  - Sciatica [Unknown]

NARRATIVE: CASE EVENT DATE: 2015
